FAERS Safety Report 5374865-3 (Version None)
Quarter: 2007Q2

REPORT INFORMATION
  Report Type: 
  Country: None (occurrence: None)
  Receive Date: 20070629
  Receipt Date: 20070621
  Transmission Date: 20071010
  Serious: Yes (Life-Threatening)
  Sender: FDA-Public Use
  Company Number: B0477133A

PATIENT
  Age: 83 Year
  Sex: Female

DRUGS (6)
  1. AUGMENTIN '125' [Suspect]
     Dosage: 3G PER DAY
     Route: 048
     Dates: start: 20070516, end: 20070521
  2. BACTRIM [Suspect]
     Dosage: 500MG TWICE PER DAY
     Route: 048
     Dates: start: 20070521, end: 20070522
  3. TENORMIN [Concomitant]
  4. ACTONEL [Concomitant]
  5. PLAVIX [Concomitant]
     Route: 048
  6. MEMANTINE HCL [Concomitant]

REACTIONS (5)
  - CARDIO-RESPIRATORY ARREST [None]
  - GENERAL PHYSICAL HEALTH DETERIORATION [None]
  - HYPERSENSITIVITY [None]
  - OEDEMA [None]
  - TACHYCARDIA [None]
